FAERS Safety Report 13955817 (Version 1)
Quarter: 2017Q3

REPORT INFORMATION
  Report Type: Spontaneous
  Country: US (occurrence: US)
  Receive Date: 20170911
  Receipt Date: 20170911
  Transmission Date: 20171128
  Serious: Yes (Death, Other)
  Sender: FDA-Public Use
  Company Number: US-CELGENEUS-USA-20170809648

PATIENT

DRUGS (2)
  1. VIDAZA [Suspect]
     Active Substance: AZACITIDINE
     Indication: HAEMATOLOGICAL MALIGNANCY
     Route: 065
  2. PRACINOSTAT [Suspect]
     Active Substance: PRACINOSTAT
     Indication: HAEMATOLOGICAL MALIGNANCY
     Route: 065

REACTIONS (14)
  - Anaemia [Unknown]
  - Fatigue [Unknown]
  - Diarrhoea [Unknown]
  - Nausea [Unknown]
  - Death [Fatal]
  - Alanine aminotransferase increased [Unknown]
  - Decreased appetite [Unknown]
  - Infection [Unknown]
  - Constipation [Unknown]
  - Thrombocytopenia [Unknown]
  - Vomiting [Unknown]
  - Haematological malignancy [Fatal]
  - Electrocardiogram QT prolonged [Unknown]
  - Neutropenia [Unknown]
